FAERS Safety Report 7115496-4 (Version None)
Quarter: 2010Q4

REPORT INFORMATION
  Report Type: 
  Country: None (occurrence: None)
  Receive Date: 20101117
  Receipt Date: 20101117
  Transmission Date: 20110411
  Serious: Yes (Hospitalization)
  Sender: FDA-Public Use
  Company Number: None

PATIENT
  Sex: Male
  Weight: 91 kg

DRUGS (7)
  1. CYCLOPHOSPHAMIDE [Suspect]
     Dosage: 2000 MG
  2. CYTARABINE [Suspect]
  3. DOXORUBICIN HCL [Suspect]
  4. METHOTREXATE [Suspect]
     Dosage: 45 MG
  5. METHOTREXATE [Suspect]
     Dosage: 45 MG
  6. PEG-L- ASPARAGINASE (K- H) [Suspect]
     Dosage: 10050 IU
  7. VINCRISTINE SULFATE [Suspect]
     Dosage: 10 MG

REACTIONS (1)
  - FEBRILE NEUTROPENIA [None]
